FAERS Safety Report 5575495-0 (Version None)
Quarter: 2007Q4

REPORT INFORMATION
  Report Type: 
  Country: None (occurrence: None)
  Receive Date: 20071227
  Receipt Date: 20071217
  Transmission Date: 20080405
  Serious: Yes (Hospitalization)
  Sender: FDA-Public Use
  Company Number: FR-ABBOTT-07P-056-0430726-00

PATIENT
  Sex: Female

DRUGS (10)
  1. DEPAKENE [Suspect]
     Indication: BIPOLAR DISORDER
     Route: 048
     Dates: end: 20071010
  2. DEPAKENE [Suspect]
     Indication: SCHIZOPHRENIA
     Route: 048
     Dates: start: 20071011, end: 20071012
  3. DEPAKENE [Suspect]
     Route: 048
     Dates: start: 20071013, end: 20071019
  4. DEPAKENE [Suspect]
     Route: 048
     Dates: start: 20071020, end: 20071024
  5. DEPAKENE [Suspect]
     Route: 048
     Dates: start: 20071025
  6. CHLORPROMAZINE HYDROCHLORIDE [Concomitant]
     Indication: BIPOLAR DISORDER
     Route: 065
  7. CHLORPROMAZINE HYDROCHLORIDE [Concomitant]
     Indication: SCHIZOPHRENIA
  8. LOXAPINE [Concomitant]
     Indication: BIPOLAR DISORDER
     Route: 065
     Dates: start: 20071017, end: 20071023
  9. CLONAZEPAM [Concomitant]
     Indication: DRUG USE FOR UNKNOWN INDICATION
     Route: 065
     Dates: start: 20071001
  10. ALIMEMAZINE TARTRATE [Concomitant]
     Indication: DRUG USE FOR UNKNOWN INDICATION
     Route: 065
     Dates: start: 20071001

REACTIONS (5)
  - CONFUSIONAL STATE [None]
  - DRUG LEVEL INCREASED [None]
  - MENTAL DISORDER [None]
  - NEUTROPENIA [None]
  - THROMBOCYTOPENIA [None]
